FAERS Safety Report 8109377 (Version 4)
Quarter: 2013Q4

REPORT INFORMATION
  Report Type: Spontaneous
  Country: US (occurrence: US)
  Receive Date: 20110826
  Receipt Date: 20131126
  Transmission Date: 20140711
  Serious: Yes (Hospitalization, Other)
  Sender: FDA-Public Use
  Company Number: US-BAYER-2011-075109

PATIENT
  Age: 19 Year
  Sex: Female
  Weight: 68.03 kg

DRUGS (8)
  1. YAZ [Suspect]
     Indication: CONTRACEPTION
     Dosage: UNK
     Dates: start: 200802, end: 200809
  2. YASMIN [Suspect]
     Indication: CONTRACEPTION
     Dosage: UNK
     Dates: start: 200809, end: 200905
  3. AMITRIPTYLINE [Concomitant]
     Dosage: 25 MG, UNK
     Route: 048
     Dates: start: 20080107, end: 20090827
  4. CLARITIN [Concomitant]
     Indication: MULTIPLE ALLERGIES
  5. AMOXICILLIN W/CLAVULANATE POTASSIUM [Concomitant]
     Dosage: 875 MG, UNK
     Dates: start: 20090307
  6. FLUTICASONE [Concomitant]
     Dosage: 50 ?G, UNK
     Route: 048
     Dates: start: 20090307
  7. HYDROCODONE W/APAP [Concomitant]
     Dosage: 7.5/500
     Route: 048
     Dates: start: 20090504
  8. ORTHO TRICYCLEN [Concomitant]

REACTIONS (5)
  - Gallbladder injury [None]
  - Hepatobiliary scan abnormal [None]
  - Cholecystitis chronic [None]
  - Injury [None]
  - Pain [None]
